FAERS Safety Report 16724628 (Version 1)
Quarter: 2019Q3

REPORT INFORMATION
  Report Type: Spontaneous
  Country: US (occurrence: US)
  Receive Date: 20190821
  Receipt Date: 20190821
  Transmission Date: 20191005
  Serious: No
  Sender: FDA-Public Use
  Company Number: US-PFIZER INC-2019352775

PATIENT
  Sex: Female

DRUGS (1)
  1. ADVIL [Suspect]
     Active Substance: IBUPROFEN
     Indication: TRIGEMINAL NEURALGIA
     Dosage: EVERY SIX HOURS

REACTIONS (3)
  - Blood disorder [Unknown]
  - Drug effective for unapproved indication [Unknown]
  - Off label use [Unknown]
